FAERS Safety Report 20459418 (Version 1)
Quarter: 2022Q1

REPORT INFORMATION
  Report Type: Spontaneous
  Country: AU (occurrence: AU)
  Receive Date: 20220211
  Receipt Date: 20220211
  Transmission Date: 20220424
  Serious: Yes (Hospitalization, Other)
  Sender: FDA-Public Use
  Company Number: AU-ALS-000513

PATIENT
  Age: 61 Year
  Sex: Male
  Weight: 118 kg

DRUGS (1)
  1. METFORMIN [Suspect]
     Active Substance: METFORMIN HYDROCHLORIDE
     Indication: Type 2 diabetes mellitus
     Route: 065

REACTIONS (5)
  - Toxicity to various agents [Unknown]
  - Metabolic acidosis [Unknown]
  - Lactic acidosis [Unknown]
  - Cardiac arrest [Unknown]
  - Hyperkalaemia [Unknown]
